FAERS Safety Report 6669735-4 (Version None)
Quarter: 2010Q2

REPORT INFORMATION
  Report Type: 
  Country: None (occurrence: None)
  Receive Date: 20100402
  Receipt Date: 20100225
  Transmission Date: 20101027
  Serious: Yes (Life-Threatening, Hospitalization)
  Sender: FDA-Public Use
  Company Number: DSA_42615_2010

PATIENT
  Sex: Female
  Weight: 52 kg

DRUGS (2)
  1. WELLBUTRIN XL [Suspect]
     Indication: DEPRESSION
     Dosage: (150 MG  QD), (20 DF 1X, NOT THE PRESCRIBED AMOUNT)
     Dates: start: 20080901, end: 20091123
  2. WELLBUTRIN XL [Suspect]
     Indication: DEPRESSION
     Dosage: (150 MG  QD), (20 DF 1X, NOT THE PRESCRIBED AMOUNT)
     Dates: start: 20091124, end: 20091124

REACTIONS (11)
  - ALANINE AMINOTRANSFERASE INCREASED [None]
  - AMNESIA [None]
  - ASPARTATE AMINOTRANSFERASE INCREASED [None]
  - COMA [None]
  - DRUG TOXICITY [None]
  - GAMMA-GLUTAMYLTRANSFERASE INCREASED [None]
  - GRAND MAL CONVULSION [None]
  - INCORRECT DOSE ADMINISTERED [None]
  - SINUS TACHYCARDIA [None]
  - STATUS EPILEPTICUS [None]
  - SUICIDE ATTEMPT [None]
